FAERS Safety Report 8628578 (Version 2)
Quarter: 2012Q4

REPORT INFORMATION
  Report Type: 
  Country: US (occurrence: US)
  Receive Date: 20120621
  Receipt Date: 20121022
  Transmission Date: 20130627
  Serious: No
  Sender: FDA-Public Use
  Company Number: US-ASTRAZENECA-2012SE39134

PATIENT
  Age: 62 Year
  Sex: Female

DRUGS (2)
  1. NEXIUM [Suspect]
     Route: 048
  2. JANUVIA [Concomitant]

REACTIONS (4)
  - Arthritis [Unknown]
  - Diabetes mellitus [Unknown]
  - Limb discomfort [Unknown]
  - Bone pain [Unknown]
